FAERS Safety Report 6159014-6 (Version None)
Quarter: 2009Q2

REPORT INFORMATION
  Report Type: 
  Country: None (occurrence: None)
  Receive Date: 20090417
  Receipt Date: 20090407
  Transmission Date: 20091009
  Serious: Yes (Other)
  Sender: FDA-Public Use
  Company Number: US-PFIZER INC-2009195015

PATIENT
  Sex: Male
  Weight: 96.145 kg

DRUGS (4)
  1. GEODON [Suspect]
     Indication: PSYCHOTIC DISORDER
     Dosage: 40 MG, UNK
     Dates: start: 20081026
  2. PALIPERIDONE [Suspect]
     Indication: PSYCHOTIC DISORDER
     Dosage: 3 MG, 1X/DAY
     Route: 048
     Dates: start: 20090202, end: 20090209
  3. KLONOPIN [Concomitant]
     Indication: ANXIETY
     Dosage: 1 MG, 2X/DAY
  4. LITHOBID [Concomitant]
     Dosage: 900 MG, 1X/DAY

REACTIONS (1)
  - LARYNGOSPASM [None]
